FAERS Safety Report 5508777-9 (Version None)
Quarter: 2007Q4

REPORT INFORMATION
  Report Type: 
  Country: None (occurrence: None)
  Receive Date: 20071107
  Receipt Date: 20071105
  Transmission Date: 20080405
  Serious: Yes (Hospitalization)
  Sender: FDA-Public Use
  Company Number: B0491366A

PATIENT
  Age: 66 Year
  Sex: Female

DRUGS (3)
  1. TAGAMET [Suspect]
     Indication: ABDOMINAL DISCOMFORT
     Dosage: 600MG PER DAY
     Route: 048
     Dates: start: 20070925, end: 20071001
  2. OXATOMIDE [Suspect]
     Indication: ECZEMA
     Route: 048
     Dates: start: 20070910, end: 20071001
  3. MAGLAX [Concomitant]
     Indication: CONSTIPATION
     Dosage: 330MG PER DAY
     Route: 048
     Dates: start: 20070925, end: 20071001

REACTIONS (6)
  - HEPATIC FUNCTION ABNORMAL [None]
  - HYPERKALAEMIA [None]
  - JAUNDICE [None]
  - PYREXIA [None]
  - RENAL FAILURE ACUTE [None]
  - RENAL IMPAIRMENT [None]
